FAERS Safety Report 12416206 (Version 1)
Quarter: 2016Q2

REPORT INFORMATION
  Report Type: Spontaneous
  Country: GB (occurrence: GB)
  Receive Date: 20160530
  Receipt Date: 20160530
  Transmission Date: 20160815
  Serious: Yes (Other)
  Sender: FDA-Public Use
  Company Number: GB-PFIZER INC-2016269952

PATIENT
  Sex: Male

DRUGS (2)
  1. LORAZEPAM. [Suspect]
     Active Substance: LORAZEPAM
     Dosage: 18 MG, UNK
  2. LORAZEPAM. [Suspect]
     Active Substance: LORAZEPAM
     Indication: CATATONIA
     Dosage: 2 MG, 1X/DAY

REACTIONS (6)
  - Medication error [Unknown]
  - Mental impairment [Unknown]
  - Condition aggravated [Unknown]
  - Pyrexia [Unknown]
  - Overdose [Unknown]
  - Catatonia [Unknown]
